FAERS Safety Report 8934240 (Version 4)
Quarter: 2013Q3

REPORT INFORMATION
  Report Type: Spontaneous
  Country: US (occurrence: US)
  Receive Date: 20121129
  Receipt Date: 20130925
  Transmission Date: 20140515
  Serious: Yes (Hospitalization, Disabling, Other)
  Sender: FDA-Public Use
  Company Number: US-009507513-1211USA010236

PATIENT
  Sex: Female
  Weight: 55.78 kg

DRUGS (1)
  1. NUVARING [Suspect]
     Indication: CONTRACEPTION
     Dosage: UNK
     Route: 067
     Dates: start: 201107, end: 20120227

REACTIONS (8)
  - Pulmonary embolism [Unknown]
  - Headache [Recovered/Resolved]
  - Photophobia [Unknown]
  - Skin disorder [Unknown]
  - Weight decreased [Unknown]
  - Fatigue [Unknown]
  - Arthralgia [Unknown]
  - Tendonitis [Unknown]
